FAERS Safety Report 18836390 (Version 1)
Quarter: 2021Q1

REPORT INFORMATION
  Report Type: Spontaneous
  Country: US (occurrence: US)
  Receive Date: 20210203
  Receipt Date: 20210203
  Transmission Date: 20210419
  Serious: No
  Sender: FDA-Public Use
  Company Number: US-ALLERGAN-2005516US

PATIENT
  Age: 61 Year
  Sex: Female

DRUGS (2)
  1. BOTOX [Suspect]
     Active Substance: ONABOTULINUMTOXINA
     Dosage: UNK UNK, SINGLE
     Dates: start: 20190927, end: 20190927
  2. BOTOX [Suspect]
     Active Substance: ONABOTULINUMTOXINA
     Indication: OROMANDIBULAR DYSTONIA
     Dosage: UNK, SINGLE
     Dates: start: 20190927, end: 20190927

REACTIONS (2)
  - Off label use [Unknown]
  - Drug ineffective for unapproved indication [Unknown]

NARRATIVE: CASE EVENT DATE: 20190927
